FAERS Safety Report 6176704-X (Version None)
Quarter: 2009Q2

REPORT INFORMATION
  Report Type: 
  Country: None (occurrence: None)
  Receive Date: 20090501
  Receipt Date: 20090420
  Transmission Date: 20091009
  Serious: Yes (Other)
  Sender: FDA-Public Use
  Company Number: US-PFIZER INC-2009200695

PATIENT
  Age: 44 Year
  Sex: Female

DRUGS (1)
  1. GEODON [Suspect]

REACTIONS (5)
  - ASTHENIA [None]
  - DYSARTHRIA [None]
  - FEELING OF DESPAIR [None]
  - IMPAIRED SELF-CARE [None]
  - LOSS OF CONSCIOUSNESS [None]
